FAERS Safety Report 9630114 (Version 1)
Quarter: 2013Q4

REPORT INFORMATION
  Report Type: Spontaneous
  Country: GB (occurrence: GB)
  Receive Date: 20131017
  Receipt Date: 20131017
  Transmission Date: 20140711
  Serious: Yes (Death)
  Sender: FDA-Public Use
  Company Number: PHHY2013GB112626

PATIENT
  Age: 78 Year
  Sex: Male

DRUGS (21)
  1. CO-CODAMOL [Suspect]
     Dosage: 2 DF, UNK
  2. ZOPICLONE [Suspect]
     Indication: SEDATION
     Dosage: 7.5 MG, UNK
     Dates: start: 20130618, end: 20130618
  3. ADCAL-D3 [Concomitant]
     Dosage: 1 DF, BID
  4. ALENDRONIC ACID [Concomitant]
     Dosage: 70 MG, QW
  5. ASPIRIN [Concomitant]
     Dosage: 75 MG, QD
  6. FINASTERIDE [Concomitant]
     Dosage: 5 MG, UNK
  7. SERETIDE [Concomitant]
     Dosage: 1 DF, BID
  8. SPIRIVA [Concomitant]
     Dosage: 1 DF, QD
  9. SIMVASTATIN [Concomitant]
     Dosage: 40 MG, QD
  10. FRUSEMIDE [Concomitant]
  11. DIGOXIN [Concomitant]
     Dosage: 125 MG, QD
     Dates: start: 20130607, end: 20130618
  12. SALBUTAMOL [Concomitant]
  13. PARACETAMOL [Concomitant]
     Dosage: 1 G, QD
  14. DIPYRIDAMOLE [Concomitant]
     Dosage: 200 MG, BID
  15. MOVICOL [Concomitant]
     Dosage: 1 DF, UNK
  16. PREDNISOLONE [Concomitant]
     Dosage: 40 MG, QD
     Dates: start: 20130611, end: 20130615
  17. AMOXICILLIN [Concomitant]
     Dosage: 1 G, TID
     Dates: start: 20130609, end: 20130611
  18. AMOXICILLIN [Concomitant]
     Dosage: 500 MG, TID
     Dates: start: 20130611, end: 20130616
  19. METRONIDAZOLE [Concomitant]
     Dosage: 400 MG, TID
  20. METRONIDAZOLE [Concomitant]
     Dosage: 500 MG, UNK
     Dates: start: 20130609, end: 20130611
  21. CLEXANE [Concomitant]
     Dosage: 40 MG, UNK
     Dates: start: 20130609, end: 20130616

REACTIONS (2)
  - Death [Fatal]
  - Respiratory depression [Fatal]
